FAERS Safety Report 5894957-X (Version None)
Quarter: 2008Q3

REPORT INFORMATION
  Report Type: 
  Country: None (occurrence: None)
  Receive Date: 20080924
  Receipt Date: 20080920
  Transmission Date: 20090109
  Serious: Yes (Death, Hospitalization)
  Sender: FDA-Public Use
  Company Number: PHHY2008MX10751

PATIENT
  Age: 83 Year
  Sex: Female

DRUGS (1)
  1. DIOVAN HCT [Suspect]
     Indication: HYPERTENSION
     Dosage: I TABLET (160/12.5) MG/DAY
     Route: 048
     Dates: start: 20071001, end: 20080901

REACTIONS (4)
  - DIVERTICULUM [None]
  - GASTRITIS [None]
  - MYOCARDIAL INFARCTION [None]
  - VOMITING [None]
